FAERS Safety Report 6534697-7 (Version None)
Quarter: 2009Q4

REPORT INFORMATION
  Report Type: 
  Country: None (occurrence: None)
  Receive Date: 20091228
  Receipt Date: 20091007
  Transmission Date: 20100525
  Serious: Yes (Other)
  Sender: FDA-Public Use
  Company Number: US-003536

PATIENT
  Age: 71 Year
  Sex: Female

DRUGS (2)
  1. MULTIHANCE [Suspect]
     Indication: NUCLEAR MAGNETIC RESONANCE IMAGING
     Dosage: 20ML ONCE INTRAVENOUS
     Route: 042
     Dates: start: 20091006, end: 20091006
  2. MULTIHANCE [Suspect]
     Indication: NUCLEAR MAGNETIC RESONANCE IMAGING BRAIN
     Dosage: 20ML ONCE INTRAVENOUS
     Route: 042
     Dates: start: 20091006, end: 20091006

REACTIONS (2)
  - LOSS OF CONSCIOUSNESS [None]
  - NAUSEA [None]
